FAERS Safety Report 26168692 (Version 1)
Quarter: 2025Q4

REPORT INFORMATION
  Report Type: Spontaneous
  Country: US (occurrence: None)
  Receive Date: 20251217
  Receipt Date: 20251217
  Transmission Date: 20260118
  Serious: No
  Sender: APOTEX
  Company Number: US-APOTEX-2025AP033227

PATIENT
  Sex: Male

DRUGS (3)
  1. IPRATROPIUM [Suspect]
     Active Substance: IPRATROPIUM
     Indication: Nasal disorder
     Dosage: 4 DOSAGE FORM, BID (2 SPRAYS EACH NOSTRIL TWICE DAILY)
  2. IPRATROPIUM [Suspect]
     Active Substance: IPRATROPIUM
  3. DULOXETINE [Concomitant]
     Active Substance: DULOXETINE
     Indication: Sensory loss
     Dosage: 30 MILLIGRAM, QD
     Route: 065

REACTIONS (1)
  - Drug ineffective [Unknown]

NARRATIVE: CASE EVENT DATE: 20250101
